FAERS Safety Report 10170456 (Version 1)
Quarter: 2014Q2

REPORT INFORMATION
  Report Type: Spontaneous
  Country: BR (occurrence: BR)
  Receive Date: 20140513
  Receipt Date: 20140513
  Transmission Date: 20141212
  Serious: Yes (Other)
  Sender: FDA-Public Use
  Company Number: BR-PFIZER INC-2014126102

PATIENT
  Age: 76 Year
  Sex: Male
  Weight: 69 kg

DRUGS (3)
  1. LIPITOR [Suspect]
     Indication: DIABETES MELLITUS
     Dosage: 20 MG, 1 TABLET A DAY
     Route: 048
     Dates: start: 20091214
  2. LIPITOR [Suspect]
     Indication: HYPERTENSION
  3. COZAAR [Concomitant]
     Indication: HYPERTENSION
     Dosage: 2 DF, 2 TABLETS A DAY
     Dates: start: 2008

REACTIONS (3)
  - Weight decreased [Unknown]
  - Blood pressure abnormal [Unknown]
  - Off label use [Unknown]
